FAERS Safety Report 18058066 (Version 1)
Quarter: 2020Q3

REPORT INFORMATION
  Report Type: Spontaneous
  Country: FR (occurrence: FR)
  Receive Date: 20200723
  Receipt Date: 20200723
  Transmission Date: 20201103
  Serious: Yes (Hospitalization)
  Sender: FDA-Public Use
  Company Number: FR-TEVA-2020-FR-1803607

PATIENT
  Age: 22 Year
  Sex: Female

DRUGS (2)
  1. LAMALINE (CAFFEINE\PARACETAMOL\ATROPA BELLADONNA EXTRACT\PAPAVER SOMNIFERUM TINCTURE) [Suspect]
     Active Substance: ACETAMINOPHEN\BELLADONNA LEAF\CAFFEINE\OPIUM
     Dosage: 4 CP, 4 DOSAGE FORMS
     Route: 048
     Dates: start: 20191119, end: 20191119
  2. TRAMADOL (CHLORHYDRATE DE) [Suspect]
     Active Substance: TRAMADOL HYDROCHLORIDE
     Dosage: 20 CP, 20 DOSAGE FORMS
     Route: 048
     Dates: start: 20191119, end: 20191119

REACTIONS (3)
  - Somnolence [Unknown]
  - Abdominal pain upper [Unknown]
  - Hyperlipasaemia [Unknown]

NARRATIVE: CASE EVENT DATE: 20191119
